FAERS Safety Report 9006521 (Version 1)
Quarter: 2013Q1

REPORT INFORMATION
  Report Type: Spontaneous
  Country: US (occurrence: US)
  Receive Date: 20130110
  Receipt Date: 20130110
  Transmission Date: 20140127
  Serious: Yes (Hospitalization)
  Sender: FDA-Public Use
  Company Number: US-BAYER-2013-001685

PATIENT
  Age: 45 Year
  Sex: Female

DRUGS (8)
  1. YAZ [Suspect]
  2. TRAZODONE [Concomitant]
  3. GEODON [Concomitant]
  4. TYLENOL [Concomitant]
  5. ADVIL [Concomitant]
  6. ZOLOFT [Concomitant]
  7. ORTHO-NOVUM [ETHINYLESTRADIOL,NORETHISTERONE] [Concomitant]
  8. ZOVIRAX [Concomitant]

REACTIONS (2)
  - Thrombophlebitis superficial [Recovering/Resolving]
  - Deep vein thrombosis [Recovering/Resolving]
